FAERS Safety Report 12147986 (Version 1)
Quarter: 2016Q1

REPORT INFORMATION
  Report Type: Spontaneous
  Country: BG (occurrence: BG)
  Receive Date: 20160304
  Receipt Date: 20160304
  Transmission Date: 20160526
  Serious: Yes (Other)
  Sender: FDA-Public Use
  Company Number: BG-PFIZER INC-2016131753

PATIENT
  Age: 74 Year
  Sex: Female

DRUGS (2)
  1. RENAPRIL [Concomitant]
     Indication: HYPERTENSION
     Dosage: 5 MG, 1X/DAY
     Dates: start: 2006
  2. TORISEL [Suspect]
     Active Substance: TEMSIROLIMUS
     Dosage: 60 MG, WEEKLY
     Dates: start: 20151030

REACTIONS (4)
  - Herpes zoster [Unknown]
  - Transaminases increased [Unknown]
  - Hepatitis toxic [Unknown]
  - Dyspepsia [Unknown]

NARRATIVE: CASE EVENT DATE: 20160223
